FAERS Safety Report 9507020 (Version 1)
Quarter: 2013Q3

REPORT INFORMATION
  Report Type: Spontaneous
  Country: US (occurrence: None)
  Receive Date: 20130905
  Receipt Date: 20130905
  Transmission Date: 20140515
  Serious: No
  Sender: FDA-Public Use
  Company Number: None

PATIENT
  Age: 70 Year
  Sex: Female
  Weight: 65.32 kg

DRUGS (2)
  1. HIZENTRA [Suspect]
     Dosage: 7 GRAMS WEEKLY SUBCUTANEOUS
     Route: 058
  2. TESTOSTERONE [Suspect]
     Dosage: UNCERTAIN UNCERTAIN TOPICALLY
     Route: 061

REACTIONS (1)
  - Liver function test abnormal [None]
